FAERS Safety Report 4575282-6 (Version None)
Quarter: 2005Q1

REPORT INFORMATION
  Report Type: 
  Country: None (occurrence: None)
  Receive Date: 20050127
  Receipt Date: 20050127
  Transmission Date: 20050727
  Serious: Yes (Other)
  Sender: FDA-Public Use
  Company Number: None

PATIENT
  Age: 12 Year
  Sex: Female
  Weight: 58.9676 kg

DRUGS (2)
  1. ACETAMINOPHEN W/ CODEINE [Suspect]
     Indication: PAIN
     Dosage: 2 TSP PO Q 4-6 HRS
     Route: 048
     Dates: start: 20041227, end: 20041231
  2. IBUPROFEN [Concomitant]

REACTIONS (3)
  - AGITATION [None]
  - ANXIETY [None]
  - HALLUCINATION, AUDITORY [None]
